FAERS Safety Report 9161971 (Version 2)
Quarter: 2013Q3

REPORT INFORMATION
  Report Type: Spontaneous
  Country: JP (occurrence: JP)
  Receive Date: 20130314
  Receipt Date: 20130812
  Transmission Date: 20140515
  Serious: Yes (Other)
  Sender: FDA-Public Use
  Company Number: JP-JNJFOC-20130305509

PATIENT
  Age: 57 Year
  Sex: Female

DRUGS (1)
  1. DOXORUBICIN HYDROCHLORIDE (DOXIL) [Suspect]
     Indication: OVARIAN CANCER RECURRENT
     Dosage: 0.55 MG/MINUTE
     Route: 042
     Dates: start: 201302, end: 201302

REACTIONS (4)
  - Shock [Recovered/Resolved]
  - Erythema [Recovered/Resolved]
  - Abdominal pain [Recovered/Resolved]
  - Nausea [Recovered/Resolved]
